FAERS Safety Report 14911350 (Version 1)
Quarter: 2018Q2

REPORT INFORMATION
  Report Type: Report from Study
  Country: None (occurrence: CH)
  Receive Date: 20180518
  Receipt Date: 20180518
  Transmission Date: 20180711
  Serious: Yes (Other)
  Sender: FDA-Public Use
  Company Number: CH-ABBVIE-18K-151-2353821-00

PATIENT
  Sex: Female

DRUGS (3)
  1. DUODOPA [Suspect]
     Active Substance: CARBIDOPA\LEVODOPA
     Indication: PARKINSON^S DISEASE
     Route: 050
     Dates: start: 20150804, end: 20150810
  2. DUODOPA [Suspect]
     Active Substance: CARBIDOPA\LEVODOPA
     Dosage: CONTINUOUS RATE: 3.9ML/H??FROM 6AM TO 10PM, ??OCCASIONALLY EXTRA DOSE
     Route: 050
     Dates: start: 20150810
  3. CARBIDOPA/LEVODOPA CR1 [Concomitant]
     Indication: PRODUCT USED FOR UNKNOWN INDICATION

REACTIONS (20)
  - Osteoarthritis [Unknown]
  - Spinal osteoarthritis [Unknown]
  - Carpal tunnel syndrome [Unknown]
  - Fatigue [Unknown]
  - Dyskinesia [Unknown]
  - Device connection issue [Recovered/Resolved]
  - Stoma site extravasation [Unknown]
  - Polyneuropathy [Unknown]
  - Osteoporosis [Unknown]
  - Hypoaesthesia [Unknown]
  - Stoma site discharge [Unknown]
  - Cough [Unknown]
  - Injury [Unknown]
  - Hyperkinesia [Unknown]
  - Excessive granulation tissue [Not Recovered/Not Resolved]
  - Hyporeflexia [Unknown]
  - Vertigo positional [Unknown]
  - Myosclerosis [Unknown]
  - Muscle spasms [Unknown]
  - Paraesthesia [Unknown]

NARRATIVE: CASE EVENT DATE: 2016
